FAERS Safety Report 5853420-2 (Version None)
Quarter: 2008Q3

REPORT INFORMATION
  Report Type: 
  Country: None (occurrence: None)
  Receive Date: 20080820
  Receipt Date: 20080806
  Transmission Date: 20090109
  Serious: Yes (Hospitalization)
  Sender: FDA-Public Use
  Company Number: 1000000529

PATIENT
  Age: 23 Year
  Sex: Male

DRUGS (4)
  1. CITALOPRAM ORAL SOLUTION(CITALOPRAM HYDROBROMIDE)(40 MILLIGRAM/MILLILI [Suspect]
     Indication: PSYCHOTIC DISORDER
     Dosage: 1 ML (1 ML, 1 IN 1 D) ORAL
     Route: 048
     Dates: start: 20080513, end: 20080526
  2. LARGACTIL(4 PERCENT, DROPS(FOR ORAL USE)) [Suspect]
     Indication: PSYCHOTIC DISORDER
     Dosage: 50 GTT (50 GTT, 1 IN 1 D),ORAL
     Route: 048
     Dates: start: 20080513, end: 20080526
  3. LOXAPINE HCL [Concomitant]
  4. RIVOTRIL(2.5 MILLIGRAM/MILLILITERS, DROPS(FOR ORAL USE)) [Concomitant]

REACTIONS (1)
  - CYTOLYTIC HEPATITIS [None]
